FAERS Safety Report 6067365-9 (Version None)
Quarter: 2009Q1

REPORT INFORMATION
  Report Type: 
  Country: None (occurrence: None)
  Receive Date: 20090204
  Receipt Date: 20090204
  Transmission Date: 20090719
  Serious: Yes (Other)
  Sender: FDA-Public Use
  Company Number: None

PATIENT
  Sex: Male
  Weight: 131.0895 kg

DRUGS (3)
  1. TRANDOLAPRIL [Suspect]
     Indication: CARDIOMYOPATHY
     Dosage: 4 MG ONCE QD PO
     Route: 048
     Dates: start: 20080401, end: 20080601
  2. TRANDOLAPRIL [Suspect]
     Indication: CARDIOVASCULAR DISORDER
     Dosage: 4 MG ONCE QD PO
     Route: 048
     Dates: start: 20080401, end: 20080601
  3. TRANDOLAPRIL [Suspect]
     Indication: HYPERTENSION
     Dosage: 4 MG ONCE QD PO
     Route: 048
     Dates: start: 20080401, end: 20080601

REACTIONS (3)
  - FEELING ABNORMAL [None]
  - HEADACHE [None]
  - PRODUCT QUALITY ISSUE [None]
